FAERS Safety Report 9547827 (Version 1)
Quarter: 2013Q3

REPORT INFORMATION
  Report Type: Spontaneous
  Country: US (occurrence: None)
  Receive Date: 20130923
  Receipt Date: 20130923
  Transmission Date: 20140515
  Serious: Yes (Death)
  Sender: FDA-Public Use
  Company Number: None

PATIENT
  Age: 53 Year
  Sex: Female

DRUGS (4)
  1. COPAXONE [Suspect]
     Indication: MULTIPLE SCLEROSIS
     Dates: start: 20101002, end: 20130911
  2. METHADONE [Concomitant]
  3. ZOLOFT [Concomitant]
  4. ZYPREXA [Concomitant]

REACTIONS (2)
  - Central nervous system inflammation [None]
  - No therapeutic response [None]
